FAERS Safety Report 20460146 (Version 1)
Quarter: 2022Q1

REPORT INFORMATION
  Report Type: Spontaneous
  Country: US (occurrence: US)
  Receive Date: 20220211
  Receipt Date: 20220211
  Transmission Date: 20220423
  Serious: Yes (Other)
  Sender: FDA-Public Use
  Company Number: US-LUPIN PHARMACEUTICALS INC.-2022-01815

PATIENT
  Age: 70 Year
  Sex: Female

DRUGS (7)
  1. CLOBETASOL [Suspect]
     Active Substance: CLOBETASOL
     Indication: Psoriasis
     Dosage: UNK (CLOBETASOL 0.05% OINTMENTS)
     Route: 061
  2. CLOBETASOL [Suspect]
     Active Substance: CLOBETASOL
     Dosage: UNK, BID (APPLICATION UNDER OCCLUSION WITH A COTTON GLOVE) (CLOBETASOL 0.05% OINTMENTS)
     Route: 061
  3. CETIRIZINE [Suspect]
     Active Substance: CETIRIZINE HYDROCHLORIDE
     Indication: Pruritus
     Dosage: 10 MG, QD (RECEIVED EVERY MORNING)
     Route: 048
  4. TRIAMCINOLONE [Suspect]
     Active Substance: TRIAMCINOLONE
     Indication: Eczema
     Dosage: UNK (TRIAMCINOLONE 0.1% OINTMENTS)
     Route: 061
  5. HYDROXYZINE [Suspect]
     Active Substance: HYDROXYZINE HYDROCHLORIDE
     Indication: Pruritus
     Dosage: 25 MG, QD (RECEIVED AT NIGHT)
     Route: 048
  6. CAMPHOR (SYNTHETIC)\CAMPHOR OIL, WHITE\MENTHOL [Suspect]
     Active Substance: CAMPHOR (SYNTHETIC)\CAMPHOR OIL, WHITE\MENTHOL
     Indication: Pruritus
     Dosage: UNK
     Route: 065
  7. MENTHOL CAMPHOR [Suspect]
     Active Substance: CAMPHOR (SYNTHETIC)\MENTHOL
     Indication: Eczema
     Dosage: UNK
     Route: 065

REACTIONS (1)
  - Drug ineffective [Unknown]
